FAERS Safety Report 9359067 (Version 3)
Quarter: 2013Q3

REPORT INFORMATION
  Report Type: Report from Study
  Country: JP (occurrence: JP)
  Receive Date: 20130620
  Receipt Date: 20130718
  Transmission Date: 20140515
  Serious: Yes (Hospitalization, Other)
  Sender: FDA-Public Use
  Company Number: JP-GILEAD-2013-0077585

PATIENT
  Age: 41 Year
  Sex: Male

DRUGS (4)
  1. EMTRICITABINE/TENOFOVIR DISOPROXIL FUMARATE [Suspect]
     Indication: HIV INFECTION
     Dosage: 1 DF, QD
     Route: 048
     Dates: start: 20101120
  2. STOCRIN [Concomitant]
     Indication: HIV INFECTION
     Dosage: UNK
     Route: 048
     Dates: start: 20020513
  3. CROSS EIGHT M [Concomitant]
     Indication: FACTOR VIII DEFICIENCY
     Dosage: UNK
     Route: 041
     Dates: start: 20120401
  4. BONOTEO [Concomitant]
     Indication: OSTEOPOROSIS
     Dosage: 50 MG, Q4WK
     Route: 048
     Dates: start: 20130201

REACTIONS (2)
  - Osteoporosis [Not Recovered/Not Resolved]
  - Femoral neck fracture [Recovering/Resolving]
